FAERS Safety Report 17244324 (Version 5)
Quarter: 2025Q1

REPORT INFORMATION
  Report Type: Spontaneous
  Country: US (occurrence: US)
  Receive Date: 20200107
  Receipt Date: 20250325
  Transmission Date: 20250409
  Serious: Yes (Other)
  Sender: GILEAD
  Company Number: US-GILEAD-2019-0444868

PATIENT
  Age: 51 Year
  Sex: Male
  Weight: 92.063 kg

DRUGS (15)
  1. ATRIPLA [Suspect]
     Active Substance: EFAVIRENZ\EMTRICITABINE\TENOFOVIR DISOPROXIL FUMARATE
     Indication: HIV infection
     Route: 048
     Dates: start: 201108, end: 201607
  2. GENVOYA [Concomitant]
     Active Substance: COBICISTAT\ELVITEGRAVIR\EMTRICITABINE\TENOFOVIR ALAFENAMIDE FUMARATE
  3. VITAMIN D NOS [Concomitant]
     Active Substance: CHOLECALCIFEROL\ERGOCALCIFEROL
  4. ASPIRIN [Concomitant]
     Active Substance: ASPIRIN
  5. TESTOSTERONE [Concomitant]
     Active Substance: TESTOSTERONE
  6. CALCIUM [Concomitant]
     Active Substance: CALCIUM
  7. ATENOLOL [Concomitant]
     Active Substance: ATENOLOL
  8. VALSARTAN [Concomitant]
     Active Substance: VALSARTAN
  9. DOXYCYCLINE [Concomitant]
     Active Substance: DOXYCYCLINE
  10. IVERMECTIN [Concomitant]
     Active Substance: IVERMECTIN
  11. AVAR [Concomitant]
     Active Substance: SULFACETAMIDE SODIUM\SULFUR
  12. FOLIC ACID [Concomitant]
     Active Substance: FOLIC ACID
  13. COBAMAMIDE [Concomitant]
     Active Substance: COBAMAMIDE
  14. VITAMIN B6 [Concomitant]
     Active Substance: PYRIDOXINE HYDROCHLORIDE
  15. CANDESARTAN [Concomitant]
     Active Substance: CANDESARTAN

REACTIONS (9)
  - Osteoporosis [Unknown]
  - Chronic kidney disease [Not Recovered/Not Resolved]
  - Economic problem [Not Recovered/Not Resolved]
  - Anhedonia [Not Recovered/Not Resolved]
  - Emotional distress [Not Recovered/Not Resolved]
  - Anxiety [Not Recovered/Not Resolved]
  - Pain [Not Recovered/Not Resolved]
  - Depression [Not Recovered/Not Resolved]
  - Osteopenia [Not Recovered/Not Resolved]

NARRATIVE: CASE EVENT DATE: 20180316
